FAERS Safety Report 6962608-9 (Version None)
Quarter: 2010Q3

REPORT INFORMATION
  Report Type: 
  Country: None (occurrence: None)
  Receive Date: 20100902
  Receipt Date: 20100719
  Transmission Date: 20110219
  Serious: Yes (Death, Hospitalization, Other)
  Sender: FDA-Public Use
  Company Number: US-BAXTER-2009BH013037

PATIENT
  Age: 78 Year
  Sex: Female
  Weight: 59 kg

DRUGS (23)
  1. HEPARIN SODIUM INJECTION [Suspect]
     Indication: HAEMODIALYSIS
     Route: 042
     Dates: start: 20080103, end: 20080103
  2. HEPARIN SODIUM INJECTION [Suspect]
     Indication: CARDIAC DISORDER
     Route: 042
     Dates: start: 20080103, end: 20080103
  3. HEPARIN SODIUM INJECTION [Suspect]
     Route: 010
     Dates: start: 20080101, end: 20080116
  4. HEPARIN SODIUM INJECTION [Suspect]
     Route: 010
     Dates: start: 20080101, end: 20080116
  5. HEPARIN SODIUM INJECTION [Suspect]
     Route: 010
     Dates: start: 20080101, end: 20080116
  6. HEPARIN SODIUM INJECTION [Suspect]
     Route: 010
     Dates: start: 20080101, end: 20080116
  7. HEPARIN SODIUM INJECTION [Suspect]
     Route: 042
     Dates: start: 20071218, end: 20071218
  8. HEPARIN SODIUM INJECTION [Suspect]
     Route: 042
     Dates: start: 20071218, end: 20071218
  9. HEPARIN SODIUM INJECTION [Suspect]
     Route: 042
     Dates: start: 20071128
  10. HEPARIN SODIUM INJECTION [Suspect]
     Route: 042
     Dates: start: 20071128
  11. HEPARIN SODIUM 5,000 UNITS IN DEXTROSE 5% [Suspect]
     Indication: CARDIAC DISORDER
     Route: 041
     Dates: start: 20071128, end: 20071203
  12. HEPARIN SODIUM 5,000 UNITS IN DEXTROSE 5% [Suspect]
     Route: 041
     Dates: start: 20071218, end: 20071201
  13. EPOGEN [Concomitant]
     Indication: PRODUCT USED FOR UNKNOWN INDICATION
     Route: 042
  14. VANCOMYCIN [Concomitant]
     Indication: PRODUCT USED FOR UNKNOWN INDICATION
     Route: 065
  15. HYDRALAZINE [Concomitant]
     Indication: PRODUCT USED FOR UNKNOWN INDICATION
     Route: 065
  16. AMLODIPINE [Concomitant]
     Indication: PRODUCT USED FOR UNKNOWN INDICATION
     Route: 065
  17. METOPROLOL TARTRATE [Concomitant]
     Indication: PRODUCT USED FOR UNKNOWN INDICATION
     Route: 065
  18. ISOSORBIDE [Concomitant]
     Indication: PRODUCT USED FOR UNKNOWN INDICATION
     Route: 065
  19. ALLOPURINOL [Concomitant]
     Indication: PRODUCT USED FOR UNKNOWN INDICATION
     Route: 065
  20. LEVOTHYROXINE [Concomitant]
     Indication: PRODUCT USED FOR UNKNOWN INDICATION
     Route: 065
  21. ASPIRIN [Concomitant]
     Indication: PRODUCT USED FOR UNKNOWN INDICATION
     Route: 065
  22. WARFARIN SODIUM [Concomitant]
     Indication: PRODUCT USED FOR UNKNOWN INDICATION
     Route: 065
  23. ARANESP [Concomitant]
     Indication: PRODUCT USED FOR UNKNOWN INDICATION
     Route: 065

REACTIONS (5)
  - AGITATION [None]
  - ASTHENIA [None]
  - CARDIO-RESPIRATORY ARREST [None]
  - HYPOTENSION [None]
  - UNRESPONSIVE TO STIMULI [None]
